FAERS Safety Report 13859951 (Version 2)
Quarter: 2017Q3

REPORT INFORMATION
  Report Type: Report from Study
  Country: AR (occurrence: AR)
  Receive Date: 20170811
  Receipt Date: 20170815
  Transmission Date: 20171127
  Serious: Yes (Death, Other)
  Sender: FDA-Public Use
  Company Number: PHHY2017AR118234

PATIENT
  Sex: Male

DRUGS (1)
  1. EXFORGE [Suspect]
     Active Substance: AMLODIPINE BESYLATE\VALSARTAN
     Indication: HYPERTENSION
     Dosage: 2 DF (5 AMLODIPINE, 160 VALSARTAN NO UNITS PROVIDED), QD (A YEAR AND A HALF AGO MORE OR LESS)
     Route: 065

REACTIONS (4)
  - Cardiac failure [Fatal]
  - Diabetes mellitus [Unknown]
  - Renal failure [Fatal]
  - Viral infection [Fatal]
